FAERS Safety Report 14438121 (Version 2)
Quarter: 2018Q1

REPORT INFORMATION
  Report Type: Spontaneous
  Country: CA (occurrence: CA)
  Receive Date: 20180125
  Receipt Date: 20180129
  Transmission Date: 20180509
  Serious: Yes (Death, Hospitalization, Other)
  Sender: FDA-Public Use
  Company Number: PHHY2018CA011433

PATIENT
  Sex: Male

DRUGS (1)
  1. ENTRESTO [Suspect]
     Active Substance: SACUBITRIL\VALSARTAN
     Indication: CARDIAC FAILURE CHRONIC
     Dosage: 50 (24.3/25.7) MG, UNK
     Route: 048
     Dates: start: 20171006

REACTIONS (3)
  - Respiratory failure [Fatal]
  - Pneumonia legionella [Fatal]
  - Sepsis [Unknown]

NARRATIVE: CASE EVENT DATE: 20171025
